FAERS Safety Report 18958373 (Version 2)
Quarter: 2021Q1

REPORT INFORMATION
  Report Type: Spontaneous
  Country: DE (occurrence: DE)
  Receive Date: 20210302
  Receipt Date: 20210304
  Transmission Date: 20210420
  Serious: Yes (Other)
  Sender: FDA-Public Use
  Company Number: DE-SHILPA MEDICARE LIMITED-SML-DE-2021-00239

PATIENT
  Age: 68 Year
  Sex: Female

DRUGS (9)
  1. DENOSUMAB [Concomitant]
     Active Substance: DENOSUMAB
     Indication: PROPHYLAXIS
     Dosage: UNK
     Route: 065
     Dates: start: 20190411
  2. CARBOPLATIN. [Suspect]
     Active Substance: CARBOPLATIN
     Indication: LUNG NEOPLASM MALIGNANT
     Dosage: UNK
     Route: 065
     Dates: start: 20190411, end: 20190613
  3. NINTEDANIB [Suspect]
     Active Substance: NINTEDANIB
     Dosage: UNK
     Route: 065
     Dates: start: 20191018, end: 20210204
  4. PEMBROLIZUMAB. [Suspect]
     Active Substance: PEMBROLIZUMAB
     Indication: LUNG NEOPLASM MALIGNANT
     Dosage: UNK
     Route: 065
     Dates: start: 20190411, end: 20190613
  5. DOCETAXEL, UNKNOWN [Suspect]
     Active Substance: DOCETAXEL
     Indication: LUNG CANCER METASTATIC
     Dosage: 75 MILLIGRAM/SQ. METER
     Route: 065
     Dates: start: 20190704, end: 20191017
  6. DOCETAXEL, UNKNOWN [Suspect]
     Active Substance: DOCETAXEL
     Dosage: THE FIRST CYCLE
  7. PEMETREXED DISODIUM [Suspect]
     Active Substance: PEMETREXED DISODIUM
     Indication: LUNG NEOPLASM MALIGNANT
     Dosage: UNK
     Route: 065
     Dates: start: 20190411, end: 20190613
  8. NINTEDANIB [Suspect]
     Active Substance: NINTEDANIB
     Dosage: D2 ?21, 2 X200MG
     Route: 065
     Dates: start: 20190705, end: 20190904
  9. NINTEDANIB [Suspect]
     Active Substance: NINTEDANIB
     Indication: LUNG CANCER METASTATIC
     Dosage: 2 X 150 MG
     Route: 065
     Dates: start: 20190906

REACTIONS (3)
  - Malignant neoplasm progression [Unknown]
  - Diarrhoea [Unknown]
  - Nausea [Unknown]

NARRATIVE: CASE EVENT DATE: 2019
